FAERS Safety Report 24160533 (Version 1)
Quarter: 2024Q3

REPORT INFORMATION
  Report Type: Spontaneous
  Country: IT (occurrence: IT)
  Receive Date: 20240801
  Receipt Date: 20240801
  Transmission Date: 20241016
  Serious: Yes (Other)
  Sender: AMGEN
  Company Number: IT-AMGEN-ITASP2024147944

PATIENT
  Age: 86 Year
  Sex: Female

DRUGS (2)
  1. CINACALCET HYDROCHLORIDE [Suspect]
     Active Substance: CINACALCET HYDROCHLORIDE
     Indication: Parathyroid disorder
     Dosage: 2 TABLETS PER DAY
     Route: 065
  2. ARIMIDEX [Concomitant]
     Active Substance: ANASTROZOLE
     Dosage: UNK
     Route: 065
     Dates: end: 202310

REACTIONS (9)
  - Fracture [Unknown]
  - Balance disorder [Unknown]
  - Fall [Unknown]
  - Intraocular pressure increased [Unknown]
  - Neck injury [Unknown]
  - Head injury [Unknown]
  - Pelvic bone injury [Unknown]
  - Joint injury [Unknown]
  - Blood parathyroid hormone abnormal [Unknown]

NARRATIVE: CASE EVENT DATE: 20230701
